FAERS Safety Report 25947358 (Version 1)
Quarter: 2025Q4

REPORT INFORMATION
  Report Type: Spontaneous
  Country: US (occurrence: US)
  Receive Date: 20251022
  Receipt Date: 20251022
  Transmission Date: 20260117
  Serious: No
  Sender: Haleon PLC
  Company Number: US-OPELLA-2025OHG017 029

PATIENT
  Sex: Female

DRUGS (2)
  1. TUMS [Interacting]
     Active Substance: CALCIUM CARBONATE
     Indication: Urticaria
  2. ALLEGRA ALLERGY [Interacting]
     Active Substance: FEXOFENADINE HYDROCHLORIDE
     Indication: Urticaria
     Dosage: 2 IN THE MORNING AND 2 AT NIGHT

REACTIONS (5)
  - Lip swelling [Unknown]
  - Product use in unapproved indication [Unknown]
  - Swelling face [Unknown]
  - Drug ineffective for unapproved indication [Unknown]
  - Drug interaction [Unknown]
